FAERS Safety Report 17950479 (Version 1)
Quarter: 2020Q2

REPORT INFORMATION
  Report Type: Spontaneous
  Country: FR (occurrence: FR)
  Receive Date: 20200626
  Receipt Date: 20200626
  Transmission Date: 20200714
  Serious: Yes (Other)
  Sender: FDA-Public Use
  Company Number: NVSC2020FR175822

PATIENT
  Age: 2 Year
  Sex: Female
  Weight: 13 kg

DRUGS (7)
  1. ECONAZOLE. [Suspect]
     Active Substance: ECONAZOLE NITRATE
     Dosage: UNK
     Route: 003
     Dates: start: 20200327
  2. AMOXICILLINE [Suspect]
     Active Substance: AMOXICILLIN
     Indication: OTITIS MEDIA ACUTE
     Dosage: 1050 MG, QD
     Route: 048
     Dates: start: 20200325
  3. AMOXICILLINE [Suspect]
     Active Substance: AMOXICILLIN
     Dosage: 1050 MG, QD
     Route: 048
     Dates: start: 20200402
  4. OFLOCET [Suspect]
     Active Substance: OFLOXACIN
     Indication: OTITIS MEDIA ACUTE
     Dosage: 2 DF, QD (1.5 MG/ 0.5 ML (EAR SOLUTION IN SINGLE-DOSE CONTAINER)
     Route: 001
     Dates: start: 20200325
  5. MEKINIST [Suspect]
     Active Substance: TRAMETINIB DIMETHYL SULFOXIDE
     Indication: OPTIC GLIOMA
     Dosage: 0.35 MG/KG, QD
     Route: 048
     Dates: start: 20191213
  6. ECONAZOLE. [Suspect]
     Active Substance: ECONAZOLE NITRATE
     Indication: FUNGAL SKIN INFECTION
     Dosage: UNK
     Route: 003
     Dates: start: 20200306
  7. OFLOCET [Suspect]
     Active Substance: OFLOXACIN
     Dosage: 2 DF, QD (1.5 MG/ 0.5 ML (EAR SOLUTION IN SINGLE-DOSE CONTAINER)
     Route: 001
     Dates: start: 20200402

REACTIONS (1)
  - Stress fracture [Recovering/Resolving]

NARRATIVE: CASE EVENT DATE: 20200407
